FAERS Safety Report 23766795 (Version 1)
Quarter: 2024Q2

REPORT INFORMATION
  Report Type: Spontaneous
  Country: US (occurrence: US)
  Receive Date: 20240422
  Receipt Date: 20240422
  Transmission Date: 20240717
  Serious: Yes (Other)
  Sender: FDA-Public Use
  Company Number: US-SANDOZ-SDZ2024US040467

PATIENT
  Age: 2 Month
  Sex: Male

DRUGS (18)
  1. HYDROCORTISONE [Suspect]
     Active Substance: HYDROCORTISONE
     Indication: Seborrhoeic dermatitis
     Dosage: UNK
     Route: 061
  2. HYDROCORTISONE [Suspect]
     Active Substance: HYDROCORTISONE
     Indication: Dermatitis atopic
  3. AMOXICILLIN [Concomitant]
     Active Substance: AMOXICILLIN
     Indication: Seborrhoeic dermatitis
     Dosage: UNK
     Route: 065
  4. AMOXICILLIN [Concomitant]
     Active Substance: AMOXICILLIN
     Indication: Dermatitis atopic
  5. BACTROBAN [Concomitant]
     Active Substance: MUPIROCIN CALCIUM
     Indication: Seborrhoeic dermatitis
     Dosage: UNK
     Route: 065
  6. BACTROBAN [Concomitant]
     Active Substance: MUPIROCIN CALCIUM
     Indication: Dermatitis atopic
  7. CEFEPIME [Concomitant]
     Active Substance: CEFEPIME HYDROCHLORIDE
     Indication: Seborrhoeic dermatitis
     Dosage: UNK
     Route: 065
  8. CEFEPIME [Concomitant]
     Active Substance: CEFEPIME HYDROCHLORIDE
     Indication: Dermatitis atopic
  9. CEFTRIAXONE [Concomitant]
     Active Substance: CEFTRIAXONE\CEFTRIAXONE SODIUM
     Indication: Seborrhoeic dermatitis
     Dosage: UNK
     Route: 065
  10. CEFTRIAXONE [Concomitant]
     Active Substance: CEFTRIAXONE\CEFTRIAXONE SODIUM
     Indication: Dermatitis atopic
  11. CLINDAMYCIN [Concomitant]
     Active Substance: CLINDAMYCIN
     Indication: Seborrhoeic dermatitis
     Dosage: UNK
     Route: 041
  12. CLINDAMYCIN [Concomitant]
     Active Substance: CLINDAMYCIN
     Indication: Dermatitis atopic
  13. KETOCONAZOLE [Concomitant]
     Active Substance: KETOCONAZOLE
     Indication: Seborrhoeic dermatitis
     Dosage: UNK
     Route: 065
  14. KETOCONAZOLE [Concomitant]
     Active Substance: KETOCONAZOLE
     Indication: Dermatitis atopic
  15. NYSTATIN [Concomitant]
     Active Substance: NYSTATIN
     Indication: Seborrhoeic dermatitis
     Dosage: UNK
     Route: 065
  16. NYSTATIN [Concomitant]
     Active Substance: NYSTATIN
     Indication: Dermatitis atopic
  17. VANCOMYCIN [Concomitant]
     Active Substance: VANCOMYCIN
     Indication: Dermatitis atopic
     Dosage: UNK
     Route: 041
  18. VANCOMYCIN [Concomitant]
     Active Substance: VANCOMYCIN
     Indication: Seborrhoeic dermatitis

REACTIONS (1)
  - Adrenal suppression [Unknown]
